FAERS Safety Report 8437177-7 (Version None)
Quarter: 2012Q2

REPORT INFORMATION
  Report Type: 
  Country: None (occurrence: None)
  Receive Date: 20120614
  Receipt Date: 20120305
  Transmission Date: 20120825
  Serious: Yes (Other)
  Sender: FDA-Public Use
  Company Number: US-AMGEN-USASP2012014563

PATIENT
  Sex: Male

DRUGS (2)
  1. CABOZANTINIB [Concomitant]
  2. XGEVA [Suspect]
     Indication: PROPHYLAXIS
     Dates: start: 20120201

REACTIONS (1)
  - BLOOD PHOSPHORUS DECREASED [None]
